FAERS Safety Report 5015741-5 (Version None)
Quarter: 2006Q2

REPORT INFORMATION
  Report Type: 
  Country: None (occurrence: None)
  Receive Date: 20060526
  Receipt Date: 20060509
  Transmission Date: 20061013
  Serious: No
  Sender: FDA-Public Use
  Company Number: US_0511123434

PATIENT
  Age: 55 Year
  Sex: Female
  Weight: 78.5 kg

DRUGS (22)
  1. ZYPREXA [Suspect]
     Indication: MENTAL DISORDER
     Dosage: SEE IMAGE
     Dates: start: 19990811, end: 20010424
  2. ZYPREXA [Suspect]
     Indication: MENTAL DISORDER
     Dosage: SEE IMAGE
     Dates: start: 20010101, end: 20010507
  3. ZYPREXA [Suspect]
     Indication: MENTAL DISORDER
     Dosage: SEE IMAGE
     Dates: start: 20000208
  4. ZYPREXA [Suspect]
     Indication: MENTAL DISORDER
     Dosage: SEE IMAGE
     Dates: start: 20020508
  5. PROZAC [Suspect]
     Indication: DEPRESSION
  6. EVISTA [Suspect]
     Indication: OSTEOPOROSIS
     Dosage: 60 MG, DAILY (1/D),
     Dates: start: 19990106
  7. PREMARIN [Concomitant]
  8. PROGESTERONE ^DAK^ (PROGESTERONE) [Concomitant]
  9. TEMAZEPAM [Concomitant]
  10. ALPHAGAN [Concomitant]
  11. CELEXA [Concomitant]
  12. AMBIEN [Concomitant]
  13. VALIUM /NET/ (DIAZEPAM) [Concomitant]
  14. LASIX [Concomitant]
  15. DICLOFENAC (DICLOFENAC) [Concomitant]
  16. SERZONE [Concomitant]
  17. HALDOL (HALOOPERIDOL) [Concomitant]
  18. EFFEXOR XR [Concomitant]
  19. PROMETHAZINE [Concomitant]
  20. SPIRONOLACTONE [Concomitant]
  21. HYDROCHLOROTHIAZIDE [Concomitant]
  22. PREDNISONE TAB [Concomitant]

REACTIONS (14)
  - ANXIETY [None]
  - BLOOD CHOLESTEROL INCREASED [None]
  - BLOOD GLUCOSE INCREASED [None]
  - BLOOD TRIGLYCERIDES INCREASED [None]
  - BREAST PAIN [None]
  - BREAST TENDERNESS [None]
  - DIABETES MELLITUS [None]
  - DISEASE RECURRENCE [None]
  - FEAR [None]
  - INCREASED APPETITE [None]
  - LEUKOPENIA [None]
  - LIBIDO DECREASED [None]
  - TREATMENT NONCOMPLIANCE [None]
  - WEIGHT INCREASED [None]
